FAERS Safety Report 7399465-5 (Version None)
Quarter: 2011Q2

REPORT INFORMATION
  Report Type: 
  Country: None (occurrence: None)
  Receive Date: 20110407
  Receipt Date: 20110401
  Transmission Date: 20111010
  Serious: Yes (Hospitalization)
  Sender: FDA-Public Use
  Company Number: FR-B.I. PHARMACEUTICALS,INC./RIDGEFIELD-2011-FF-00333FF

PATIENT
  Sex: Male

DRUGS (34)
  1. ZOVIRAX [Suspect]
     Dosage: 1500 MG
     Route: 042
     Dates: start: 20101202, end: 20101210
  2. TAZOCILLINE [Suspect]
     Dosage: 4 G/500 MG
     Route: 042
     Dates: start: 20101126, end: 20101201
  3. NICOTINEL [Concomitant]
     Dosage: 1 MG THEN 2 MG (MAX 6 DAILY)
     Dates: start: 20101126, end: 20101207
  4. CIFLOX [Suspect]
     Dosage: 400 MG/200 ML
     Route: 042
     Dates: start: 20101202, end: 20101207
  5. SERESTA [Concomitant]
     Dosage: MAX 3 DAILY
  6. BRICANYL [Concomitant]
     Dates: start: 20101203, end: 20101223
  7. NOXAFIL [Suspect]
     Dosage: 600 MG
     Route: 042
     Dates: start: 20101202, end: 20101206
  8. NICORETTE [Suspect]
     Dosage: 60 MG
     Route: 055
     Dates: start: 20101127, end: 20101210
  9. SYMBICORT [Suspect]
     Route: 055
     Dates: start: 20101202
  10. ZAVEDOS [Suspect]
     Indication: ACUTE MYELOID LEUKAEMIA
     Dosage: 12 MG
     Route: 042
     Dates: start: 20101126, end: 20101130
  11. GENTAMICIN [Suspect]
     Route: 048
     Dates: start: 20101126, end: 20101216
  12. CLOTTAFACT [Concomitant]
     Indication: DISSEMINATED INTRAVASCULAR COAGULATION
     Dosage: 18 G DURING THE FIRST 5 DAYS
  13. SPIRIVA [Suspect]
     Dosage: 18 MCG
     Route: 055
  14. VANCOMYCINE [Suspect]
     Dosage: 4 G
     Route: 042
     Dates: start: 20101202, end: 20101207
  15. EMEND [Suspect]
     Dosage: 80 MG
     Route: 048
     Dates: start: 20101126, end: 20101206
  16. SOLIAN [Concomitant]
     Dosage: 600 MG
  17. IDARAC [Concomitant]
     Dates: start: 20101210, end: 20101215
  18. COLISTINE SULFATE [Suspect]
     Route: 048
     Dates: start: 20101126, end: 20101216
  19. IMODIUM [Concomitant]
     Dosage: 2 ANZ
     Dates: start: 20101126, end: 20101207
  20. ZOPHREN [Concomitant]
     Dosage: 16 MG
     Dates: start: 20101126, end: 20101206
  21. TARGOCID [Suspect]
     Dosage: 800 MG
     Route: 042
     Dates: start: 20101207, end: 20101227
  22. CLAVENTIN [Suspect]
     Dosage: 5 G/200 MG
     Route: 042
     Dates: start: 20101207, end: 20101227
  23. VESANOID [Suspect]
     Indication: ACUTE MYELOID LEUKAEMIA
     Dosage: 90 MG
     Route: 042
     Dates: start: 20101126, end: 20101215
  24. EFFEXOR [Concomitant]
     Dosage: 75 MG
  25. MOPRAL [Concomitant]
     Dosage: 20 MG
     Dates: start: 20101126
  26. MORPHINE [Concomitant]
     Dosage: 20 MG
     Route: 042
     Dates: start: 20101202, end: 20101216
  27. ATARAX [Concomitant]
     Dosage: 50 MG
     Dates: start: 20101207, end: 20101221
  28. FASTURTEC [Concomitant]
     Dosage: 18 MG
     Route: 042
     Dates: start: 20101126, end: 20101127
  29. TIENAM [Suspect]
     Dosage: 9 G
     Route: 042
     Dates: start: 20101202, end: 20101208
  30. CYTARABINE [Suspect]
     Indication: ACUTE MYELOID LEUKAEMIA
     Dosage: 400 MG
     Route: 042
     Dates: start: 20101126, end: 20101202
  31. VFEND [Suspect]
     Dosage: 800 MG
     Route: 042
     Dates: start: 20101206, end: 20101218
  32. DECTANCYL [Suspect]
     Dosage: 20 MG
     Route: 048
     Dates: start: 20101126, end: 20101129
  33. NICOPATCH [Concomitant]
     Dosage: 21MG/24H
  34. ATROVENT [Concomitant]
     Dates: start: 20101203, end: 20101223

REACTIONS (3)
  - NECROTISING ULCERATIVE GINGIVOSTOMATITIS [None]
  - RASH [None]
  - CONDITION AGGRAVATED [None]
